FAERS Safety Report 11222651 (Version 2)
Quarter: 2015Q3

REPORT INFORMATION
  Report Type: Spontaneous
  Country: FR (occurrence: FR)
  Receive Date: 20150626
  Receipt Date: 20150724
  Transmission Date: 20151125
  Serious: Yes (Hospitalization)
  Sender: FDA-Public Use
  Company Number: FR-SA-2015SA089616

PATIENT
  Age: 65 Year
  Sex: Male
  Weight: 101 kg

DRUGS (19)
  1. LASILIX FAIBLE [Suspect]
     Active Substance: FUROSEMIDE
     Route: 048
     Dates: start: 20130905
  2. LASILIX FAIBLE [Suspect]
     Active Substance: FUROSEMIDE
     Route: 065
  3. CROMEDIL [Concomitant]
     Dosage: ROUTE: OPHTHALMIC?2% EYE WASH, 2 DROPS ON MORNING AND 2 DROPS THE EVENING FOR EACH EYE
     Dates: start: 20131122
  4. RISPERDAL CONSTA [Concomitant]
     Active Substance: RISPERIDONE
     Dosage: STRENGTH: 37.5MG/ 2ML?POWDER AN SOLVENT FOR INJECTION
     Route: 042
     Dates: start: 20130102
  5. SERETIDE [Concomitant]
     Active Substance: FLUTICASONE FUROATE\SALMETEROL XINAFOATE
     Dosage: STRENGTH: 250/50 MCG/DOSE
     Route: 055
     Dates: start: 20110318
  6. SEROPLEX [Concomitant]
     Active Substance: ESCITALOPRAM OXALATE
     Route: 048
     Dates: start: 20120721
  7. STILNOX [Concomitant]
     Active Substance: ZOLPIDEM TARTRATE
     Route: 048
     Dates: start: 20121122
  8. LASILIX FAIBLE [Suspect]
     Active Substance: FUROSEMIDE
     Route: 065
  9. LOSARTAN. [Suspect]
     Active Substance: LOSARTAN
     Route: 048
     Dates: start: 20120807, end: 20150507
  10. LISINOPRIL. [Suspect]
     Active Substance: LISINOPRIL
     Route: 048
     Dates: start: 20120806, end: 20150507
  11. APRANAX [Suspect]
     Active Substance: NAPROXEN
     Dosage: 15DAYS
     Route: 048
  12. ALDACTONE [Suspect]
     Active Substance: SPIRONOLACTONE
     Route: 048
     Dates: start: 20120721, end: 20150507
  13. MONTELUKAST SODIUM. [Concomitant]
     Active Substance: MONTELUKAST SODIUM
     Route: 048
     Dates: start: 20140730, end: 20150507
  14. LASILIX [Concomitant]
     Active Substance: FUROSEMIDE
     Dosage: STRENGTH: 40MG
     Route: 048
     Dates: start: 20130905
  15. PRAVASTATIN SODIUM. [Concomitant]
     Active Substance: PRAVASTATIN SODIUM
     Route: 048
     Dates: start: 20120720
  16. DOLIPRANE [Concomitant]
     Active Substance: ACETAMINOPHEN
     Dosage: STRENGTH: 500MG?FREQUENCY: 2 DF FOUR TIMES DAILY IF NEEDED.
     Route: 048
     Dates: start: 20140730
  17. VITAMIN B6 [Concomitant]
     Active Substance: PYRIDOXINE HYDROCHLORIDE
     Route: 048
     Dates: start: 20120720
  18. GLYCEROL\PARAFFIN [Concomitant]
     Active Substance: GLYCERIN\PARAFFIN
     Dosage: OUTE: CUTANEOUS
     Dates: start: 20130404
  19. VITAMIN B1 [Concomitant]
     Active Substance: THIAMINE HYDROCHLORIDE
     Route: 048
     Dates: start: 20120720

REACTIONS (2)
  - Acute kidney injury [Recovered/Resolved]
  - Hyperkalaemia [Recovered/Resolved]

NARRATIVE: CASE EVENT DATE: 20150429
